FAERS Safety Report 15017100 (Version 1)
Quarter: 2018Q2

REPORT INFORMATION
  Report Type: Report from Study
  Country: US (occurrence: US)
  Receive Date: 20180615
  Receipt Date: 20180615
  Transmission Date: 20180711
  Serious: Yes (Death)
  Sender: FDA-Public Use
  Company Number: US-ASTRAZENECA-2018SE76545

PATIENT

DRUGS (3)
  1. MOVANTIK [Suspect]
     Active Substance: NALOXEGOL OXALATE
     Dosage: 25.0MG UNKNOWN
     Route: 048
  2. CRESTOR [Suspect]
     Active Substance: ROSUVASTATIN CALCIUM
     Route: 048
  3. TOPROL XL [Suspect]
     Active Substance: METOPROLOL SUCCINATE
     Route: 048

REACTIONS (1)
  - Death [Fatal]
